FAERS Safety Report 20488654 (Version 1)
Quarter: 2022Q1

REPORT INFORMATION
  Report Type: Spontaneous
  Country: CN (occurrence: CN)
  Receive Date: 20220218
  Receipt Date: 20220218
  Transmission Date: 20220424
  Serious: Yes (Disabling)
  Sender: FDA-Public Use
  Company Number: CN-BAXTER-2022BAX003119

PATIENT
  Age: 61 Year
  Sex: Female
  Weight: 50 kg

DRUGS (14)
  1. CYCLOPHOSPHAMIDE [Suspect]
     Active Substance: CYCLOPHOSPHAMIDE
     Indication: Breast cancer female
     Dosage: FIRST CYCLE, ROUTE: INTRA-PUMP INJECTION
     Route: 050
  2. CYCLOPHOSPHAMIDE [Suspect]
     Active Substance: CYCLOPHOSPHAMIDE
     Indication: Breast cancer stage II
     Dosage: NORMAL SALINE 40ML + CYCLOPHOSPHAMIDE 0.8G/MICROPUMP INJECTION, ONCE D1, SECOND CYCLE
     Route: 050
     Dates: start: 20220104, end: 20220104
  3. CYCLOPHOSPHAMIDE [Suspect]
     Active Substance: CYCLOPHOSPHAMIDE
     Dosage: DOSE RE-INTRODUCED
     Route: 050
  4. MESNA [Suspect]
     Active Substance: MESNA
     Indication: Prophylaxis
     Route: 065
  5. SODIUM CHLORIDE [Suspect]
     Active Substance: SODIUM CHLORIDE
     Indication: Medication dilution
     Dosage: FIRST CYCLE
     Route: 041
  6. SODIUM CHLORIDE [Suspect]
     Active Substance: SODIUM CHLORIDE
     Dosage: NORMAL SALINE 250ML + EPIRUBICIN 120 MG/IVGTT, ONCE, D1, SECOND CYCLE
     Route: 041
     Dates: start: 20220104, end: 20220104
  7. SODIUM CHLORIDE [Suspect]
     Active Substance: SODIUM CHLORIDE
     Dosage: DOSE RE-INTRODUCED
     Route: 041
  8. SODIUM CHLORIDE [Suspect]
     Active Substance: SODIUM CHLORIDE
     Dosage: FIRST CYCLE
     Route: 050
  9. SODIUM CHLORIDE [Suspect]
     Active Substance: SODIUM CHLORIDE
     Dosage: NORMAL SALINE 40ML + CYCLOPHOSPHAMIDE 0.8G/MICROPUMP INJECTION, ONCE D1
     Route: 050
     Dates: start: 20220104, end: 20220104
  10. SODIUM CHLORIDE [Suspect]
     Active Substance: SODIUM CHLORIDE
     Dosage: DOSE RE-INTRODUCED
     Route: 050
  11. EPIRUBICIN HYDROCHLORIDE [Suspect]
     Active Substance: EPIRUBICIN HYDROCHLORIDE
     Indication: Breast cancer female
     Dosage: FIRST CYCLE
     Route: 041
  12. EPIRUBICIN HYDROCHLORIDE [Suspect]
     Active Substance: EPIRUBICIN HYDROCHLORIDE
     Indication: Breast cancer stage II
     Dosage: NORMAL SALINE 250ML + EPIRUBICIN 120 MG/IVGTT, ONCE, D1
     Route: 041
     Dates: start: 20220104, end: 20220104
  13. EPIRUBICIN HYDROCHLORIDE [Suspect]
     Active Substance: EPIRUBICIN HYDROCHLORIDE
     Dosage: DOSE RE-INTRODUCED.
     Route: 041
  14. POTASSIUM [Concomitant]
     Active Substance: POTASSIUM
     Indication: Mineral supplementation
     Route: 065

REACTIONS (2)
  - Granulocytopenia [Recovering/Resolving]
  - White blood cell count decreased [Recovering/Resolving]

NARRATIVE: CASE EVENT DATE: 20220114
